FAERS Safety Report 9229709 (Version 1)
Quarter: 2013Q2

REPORT INFORMATION
  Report Type: Spontaneous
  Country: US (occurrence: US)
  Receive Date: 20130415
  Receipt Date: 20130415
  Transmission Date: 20140414
  Serious: No
  Sender: FDA-Public Use
  Company Number: US-BIOGENIDEC-2013BI032409

PATIENT
  Sex: Female

DRUGS (3)
  1. AVONEX [Suspect]
     Indication: MULTIPLE SCLEROSIS
     Route: 030
  2. AVONEX [Suspect]
     Indication: MULTIPLE SCLEROSIS
     Route: 030
     Dates: start: 19920901
  3. AVONEX [Suspect]
     Indication: MULTIPLE SCLEROSIS
     Route: 030
     Dates: start: 19980801

REACTIONS (2)
  - Adverse event [Unknown]
  - Injection site reaction [Unknown]
